FAERS Safety Report 5335323-5 (Version None)
Quarter: 2007Q2

REPORT INFORMATION
  Report Type: 
  Country: None (occurrence: None)
  Receive Date: 20070525
  Receipt Date: 20070516
  Transmission Date: 20071010
  Serious: Yes (Other)
  Sender: FDA-Public Use
  Company Number: BR-PFIZER INC-2007038659

PATIENT
  Sex: Male
  Weight: 80 kg

DRUGS (1)
  1. CELEBRA [Suspect]
     Indication: MYALGIA
     Route: 048
     Dates: start: 20070428, end: 20070502

REACTIONS (4)
  - DEPRESSION [None]
  - DRUG INEFFECTIVE [None]
  - INSOMNIA [None]
  - WEIGHT DECREASED [None]
